FAERS Safety Report 17169103 (Version 1)
Quarter: 2019Q4

REPORT INFORMATION
  Report Type: Spontaneous
  Country: US (occurrence: US)
  Receive Date: 20191218
  Receipt Date: 20191218
  Transmission Date: 20200122
  Serious: Yes (Death, Life-Threatening)
  Sender: FDA-Public Use
  Company Number: US-STRIDES ARCOLAB LIMITED-2019SP012919

PATIENT
  Age: 43 Year
  Sex: Male

DRUGS (4)
  1. CITALOPRAM [Suspect]
     Active Substance: CITALOPRAM HYDROBROMIDE
     Indication: PRODUCT USED FOR UNKNOWN INDICATION
     Dosage: UNK
     Route: 065
  2. RANITIDINE. [Suspect]
     Active Substance: RANITIDINE
     Indication: PRODUCT USED FOR UNKNOWN INDICATION
     Dosage: UNK
     Route: 065
  3. DIPHENHYDRAMINE. [Suspect]
     Active Substance: DIPHENHYDRAMINE
     Indication: PRODUCT USED FOR UNKNOWN INDICATION
     Dosage: UNK
     Route: 065
  4. ACETAMINOPHEN. [Suspect]
     Active Substance: ACETAMINOPHEN
     Indication: PRODUCT USED FOR UNKNOWN INDICATION
     Dosage: UNK
     Route: 065

REACTIONS (14)
  - Toxicity to various agents [Fatal]
  - Metabolic acidosis [Unknown]
  - Depressed level of consciousness [Unknown]
  - Hepatotoxicity [Unknown]
  - Hypoglycaemia [Unknown]
  - Coma [Unknown]
  - Acute lung injury [Unknown]
  - Thrombocytopenia [Unknown]
  - Acute kidney injury [Unknown]
  - Coagulopathy [Unknown]
  - Myocardial ischaemia [Unknown]
  - Acute respiratory distress syndrome [Unknown]
  - Hypotension [Unknown]
  - Pneumonia aspiration [Unknown]
